FAERS Safety Report 5355731-6 (Version None)
Quarter: 2007Q2

REPORT INFORMATION
  Report Type: 
  Country: None (occurrence: None)
  Receive Date: 20070613
  Receipt Date: 20070607
  Transmission Date: 20071010
  Serious: Yes (Life-Threatening)
  Sender: FDA-Public Use
  Company Number: JP-ASTRAZENECA-2007SE03268

PATIENT
  Age: 56 Year
  Sex: Male

DRUGS (4)
  1. BLOPRESS [Suspect]
     Route: 048
  2. ATENOLOL [Suspect]
     Route: 048
  3. FAMOTIDINE [Concomitant]
     Route: 048
  4. ASPIRIN [Concomitant]
     Route: 048

REACTIONS (4)
  - BRADYCARDIA [None]
  - ELECTROCARDIOGRAM QT PROLONGED [None]
  - INTENTIONAL OVERDOSE [None]
  - SHOCK HAEMORRHAGIC [None]
